FAERS Safety Report 20894047 (Version 2)
Quarter: 2022Q3

REPORT INFORMATION
  Report Type: Report from Study
  Country: IT (occurrence: IT)
  Receive Date: 20220531
  Receipt Date: 20220722
  Transmission Date: 20221027
  Serious: Yes (Other)
  Sender: FDA-Public Use
  Company Number: IT-TAKEDA-2022TUS036092

PATIENT
  Age: 40 Year
  Sex: Male

DRUGS (21)
  1. TEDUGLUTIDE [Suspect]
     Active Substance: TEDUGLUTIDE
     Indication: Short-bowel syndrome
     Dosage: 3 MILLIGRAM, QD
     Route: 042
     Dates: start: 20220112
  2. TEDUGLUTIDE [Suspect]
     Active Substance: TEDUGLUTIDE
     Indication: Short-bowel syndrome
     Dosage: 3 MILLIGRAM, QD
     Route: 042
     Dates: start: 20220112
  3. TEDUGLUTIDE [Suspect]
     Active Substance: TEDUGLUTIDE
     Indication: Short-bowel syndrome
     Dosage: 3 MILLIGRAM, QD
     Route: 042
     Dates: start: 20220112
  4. TEDUGLUTIDE [Suspect]
     Active Substance: TEDUGLUTIDE
     Indication: Short-bowel syndrome
     Dosage: 3 MILLIGRAM, QD
     Route: 042
     Dates: start: 20220112
  5. DAPTOMYCIN [Concomitant]
     Active Substance: DAPTOMYCIN
     Indication: Device related sepsis
     Dosage: UNK
     Route: 065
     Dates: start: 202110
  6. RIFAXIMIN [Concomitant]
     Active Substance: RIFAXIMIN
     Indication: Device related infection
     Dosage: 2 DOSAGE FORM, TID
     Route: 048
     Dates: start: 20211218, end: 20211222
  7. DAPTOMYCIN [Concomitant]
     Active Substance: DAPTOMYCIN
     Indication: Catheter management
     Dosage: UNK
     Route: 065
     Dates: start: 20211021, end: 20211028
  8. TAUROLIDINE [Concomitant]
     Active Substance: TAUROLIDINE
     Indication: Catheter management
     Dosage: UNK
     Route: 065
     Dates: start: 20211021, end: 20211028
  9. Riopan [Concomitant]
     Indication: Nutritional supplementation
     Dosage: 1 INTERNATIONAL UNIT
     Route: 048
     Dates: start: 2016
  10. DEURSIL [Concomitant]
     Active Substance: URSODIOL
     Indication: Cholelithiasis
     Dosage: 300 MILLIGRAM, BID
     Route: 048
     Dates: start: 2016
  11. CIPROFLOXACIN [Concomitant]
     Active Substance: CIPROFLOXACIN
     Indication: Gut fermentation syndrome
     Dosage: 500 MILLIGRAM, 1/WEEK
     Route: 048
     Dates: start: 20190117
  12. CALCIUM [Concomitant]
     Active Substance: CALCIUM
     Indication: Calcium deficiency
     Dosage: 1000 MILLIGRAM, BID
     Route: 048
     Dates: start: 20180509
  13. CHOLECALCIFEROL [Concomitant]
     Active Substance: CHOLECALCIFEROL
     Indication: Vitamin D deficiency
     Dosage: 100000 INTERNATIONAL UNIT
     Route: 030
     Dates: start: 2016
  14. ZINC SULFATE [Concomitant]
     Active Substance: ZINC SULFATE
     Indication: Zinc deficiency
     Dosage: 200 MILLIGRAM, QOD
     Route: 048
     Dates: start: 2019
  15. TOCALFA [Concomitant]
     Indication: Nutritional supplementation
     Dosage: UNK
     Route: 048
     Dates: start: 20171120
  16. Folina [Concomitant]
     Indication: Folate deficiency
     Dosage: 5 MILLIGRAM, QOD
     Route: 048
     Dates: start: 2018, end: 2019
  17. Folina [Concomitant]
     Dosage: 5 MILLIGRAM, QD
     Route: 048
     Dates: start: 2019
  18. CARBOHYDRATES\FATTY ACIDS\MINERALS\PROTEIN\VITAMINS [Concomitant]
     Active Substance: CARBOHYDRATES\FATTY ACIDS\MINERALS\PROTEIN\VITAMINS
     Indication: Nutritional supplementation
     Dosage: 9 INTERNATIONAL UNIT, QD
     Route: 048
     Dates: start: 20200408, end: 20201104
  19. CITRAK [Concomitant]
     Indication: Nutritional supplementation
     Dosage: 1 INTERNATIONAL UNIT, QD
     Route: 048
     Dates: start: 2020, end: 2020
  20. CITRAK [Concomitant]
     Dosage: 1 INTERNATIONAL UNIT, QOD
     Route: 048
     Dates: start: 2021
  21. PROBIOTICS NOS [Concomitant]
     Active Substance: PROBIOTICS NOS
     Indication: Nutritional supplementation
     Dosage: 1 INTERNATIONAL UNIT, QD
     Route: 048
     Dates: start: 2020

REACTIONS (1)
  - Vascular device infection [Recovered/Resolved]

NARRATIVE: CASE EVENT DATE: 20220308
